FAERS Safety Report 7450473-5 (Version None)
Quarter: 2011Q2

REPORT INFORMATION
  Report Type: 
  Country: None (occurrence: None)
  Receive Date: 20110422
  Receipt Date: 20110408
  Transmission Date: 20111010
  Serious: Yes (Other)
  Sender: FDA-Public Use
  Company Number: 2011001780

PATIENT
  Age: 53 Year
  Sex: Female

DRUGS (6)
  1. SUTENT [Concomitant]
  2. ERLOTINIB HYDROCHLORIDE [Suspect]
     Indication: LUNG ADENOCARCINOMA METASTATIC
     Dosage: (MG), ORAL
     Route: 048
     Dates: start: 20100506, end: 20100920
  3. CISPLATIN [Suspect]
     Indication: LUNG ADENOCARCINOMA METASTATIC
     Dosage: (50 MG, 3 X PER 3 WEEKS)
     Dates: start: 20101029
  4. VINORELBINE [Suspect]
     Indication: LUNG ADENOCARCINOMA METASTATIC
     Dosage: (40 MG, 2 X PER 3 WEEKS)
     Dates: start: 20101029
  5. ZOLEDRONIC ACID [Concomitant]
  6. AVASTIN [Suspect]
     Indication: LUNG ADENOCARCINOMA METASTATIC
     Dosage: (7.5 MG/KG, 1 X PER 3 WEEKS)
     Dates: start: 20101029

REACTIONS (11)
  - PNEUMOTHORAX [None]
  - NEUTROPHIL COUNT DECREASED [None]
  - LUNG ADENOCARCINOMA METASTATIC [None]
  - METASTASES TO BONE [None]
  - WHITE BLOOD CELL COUNT DECREASED [None]
  - METASTASES TO PLEURA [None]
  - METASTASES TO LYMPH NODES [None]
  - METASTASES TO ADRENALS [None]
  - NEOPLASM PROGRESSION [None]
  - NAUSEA [None]
  - METASTASES TO SPINE [None]
